FAERS Safety Report 7628314-2 (Version None)
Quarter: 2011Q3

REPORT INFORMATION
  Report Type: 
  Country: None (occurrence: None)
  Receive Date: 20110721
  Receipt Date: 20110721
  Transmission Date: 20111222
  Serious: Yes (Hospitalization)
  Sender: FDA-Public Use
  Company Number: None

PATIENT
  Age: 86 Year
  Sex: Male
  Weight: 83.2 kg

DRUGS (1)
  1. ALENDRONATE SODIUM [Suspect]
     Dosage: 70 MG QWEEK PO
     Route: 048
     Dates: start: 20101109, end: 20110511

REACTIONS (2)
  - PAIN IN EXTREMITY [None]
  - FEMUR FRACTURE [None]
